FAERS Safety Report 7676791-3 (Version None)
Quarter: 2011Q3

REPORT INFORMATION
  Report Type: 
  Country: None (occurrence: None)
  Receive Date: 20110811
  Receipt Date: 20110809
  Transmission Date: 20111222
  Serious: Yes (Other)
  Sender: FDA-Public Use
  Company Number: GB-TEVA-295855ISR

PATIENT
  Age: 23 Year
  Sex: Female
  Weight: 51 kg

DRUGS (1)
  1. TRAMADOL HCL [Suspect]
     Indication: BACK PAIN
     Dosage: 200 MILLIGRAM;
     Route: 048
     Dates: start: 20110610, end: 20110610

REACTIONS (4)
  - BODY TEMPERATURE DECREASED [None]
  - NIGHTMARE [None]
  - DRY MOUTH [None]
  - DYSGEUSIA [None]
